FAERS Safety Report 16611319 (Version 2)
Quarter: 2019Q4

REPORT INFORMATION
  Report Type: Spontaneous
  Country: US (occurrence: US)
  Receive Date: 20190722
  Receipt Date: 20191028
  Transmission Date: 20200122
  Serious: Yes (Other)
  Sender: FDA-Public Use
  Company Number: US-SA-2019SA197672

PATIENT
  Age: 61 Year
  Sex: Male

DRUGS (1)
  1. PRALUENT [Suspect]
     Active Substance: ALIROCUMAB
     Indication: HYPERLIPIDAEMIA
     Dosage: 150 MG
     Route: 058
     Dates: start: 201801

REACTIONS (2)
  - Hip arthroplasty [Unknown]
  - Product dose omission [Unknown]

NARRATIVE: CASE EVENT DATE: 20190717
